FAERS Safety Report 16281113 (Version 1)
Quarter: 2019Q2

REPORT INFORMATION
  Report Type: Report from Study
  Country: DE (occurrence: DE)
  Receive Date: 20190507
  Receipt Date: 20190507
  Transmission Date: 20190711
  Serious: Yes (Death, Hospitalization, Other)
  Sender: FDA-Public Use
  Company Number: DE-BRISTOL-MYERS SQUIBB COMPANY-BMS-2019-043829

PATIENT
  Age: 77 Year
  Sex: Female
  Weight: 101 kg

DRUGS (2)
  1. NIVOLUMAB [Suspect]
     Active Substance: NIVOLUMAB
     Indication: TRANSITIONAL CELL CARCINOMA
     Dosage: 240 MILLIGRAM, Q2WK
     Route: 065
     Dates: start: 20181212
  2. IPILIMUMAB [Suspect]
     Active Substance: IPILIMUMAB
     Indication: TRANSITIONAL CELL CARCINOMA
     Dosage: 83 MILLIGRAM, Q2WK
     Route: 065
     Dates: start: 20190206

REACTIONS (1)
  - Immune-mediated enterocolitis [Fatal]

NARRATIVE: CASE EVENT DATE: 20190406
